FAERS Safety Report 8905581 (Version 2)
Quarter: 2013Q2

REPORT INFORMATION
  Report Type: Spontaneous
  Country: US (occurrence: US)
  Receive Date: 20121113
  Receipt Date: 20130531
  Transmission Date: 20140414
  Serious: Yes (Other)
  Sender: FDA-Public Use
  Company Number: US-ASTRAZENECA-2012SE84919

PATIENT
  Age: 68 Year
  Sex: Female

DRUGS (2)
  1. PULMICORT FLEXHALER [Suspect]
     Route: 055
  2. NEXIUM [Suspect]
     Route: 048

REACTIONS (4)
  - Lung neoplasm [Unknown]
  - Oropharyngeal spasm [Unknown]
  - Abdominal pain upper [Unknown]
  - Drug dose omission [Unknown]
